FAERS Safety Report 6180878-4 (Version None)
Quarter: 2009Q2

REPORT INFORMATION
  Report Type: 
  Country: None (occurrence: None)
  Receive Date: 20090430
  Receipt Date: 20090227
  Transmission Date: 20091009
  Serious: No
  Sender: FDA-Public Use
  Company Number: 278335

PATIENT
  Sex: Male

DRUGS (12)
  1. LUCENTIS [Suspect]
     Indication: MACULAR DEGENERATION
     Dosage: INTRAVITREAL
     Dates: start: 20081117
  2. LEVOTHYROXINE SODIUM [Concomitant]
  3. TERAZOSIN HCL [Concomitant]
  4. LISINOPRIL [Concomitant]
  5. SPIRONOLACTONE [Concomitant]
  6. AMOXICILLIN [Concomitant]
  7. AMLODIPINE (AMLODIPINE BESYLATE) [Concomitant]
  8. GLUCOSAMINE/CHONDROITIN (CHONDROITIN SULFATE, GLUCOSAMINE) [Concomitant]
  9. GARLIC [Concomitant]
  10. CALCIUM/VITAMIN D (CALCIUM NOS, CHOLECALCIFEROL) [Concomitant]
  11. ASCORBIC ACID [Concomitant]
  12. METAMUCIL (PSYLLIUM HUSK) [Concomitant]

REACTIONS (2)
  - OCULAR HYPERAEMIA [None]
  - VISION BLURRED [None]
